FAERS Safety Report 9420249 (Version 2)
Quarter: 2013Q3

REPORT INFORMATION
  Report Type: Spontaneous
  Country: US (occurrence: US)
  Receive Date: 20130725
  Receipt Date: 20130816
  Transmission Date: 20140515
  Serious: No
  Sender: FDA-Public Use
  Company Number: US-PFIZER INC-2013217380

PATIENT
  Age: 67 Year
  Sex: Female

DRUGS (9)
  1. DILANTIN [Suspect]
     Dosage: UNK
  2. NEURONTIN [Suspect]
     Dosage: UNK
  3. NEURONTIN [Suspect]
     Dosage: UNK
  4. PREDNISONE [Suspect]
     Dosage: UNK
  5. ZITHROMAX [Suspect]
     Dosage: UNK
  6. FLOXIN [Suspect]
     Dosage: UNK
  7. FOSAMAX [Suspect]
     Dosage: UNK
  8. KEFLEX [Suspect]
     Dosage: UNK
  9. WELLBUTRIN [Suspect]
     Dosage: UNK

REACTIONS (2)
  - Drug hypersensitivity [Not Recovered/Not Resolved]
  - Nausea [Unknown]
